FAERS Safety Report 13251214 (Version 6)
Quarter: 2017Q3

REPORT INFORMATION
  Report Type: Spontaneous
  Country: GB (occurrence: GB)
  Receive Date: 20170220
  Receipt Date: 20170701
  Transmission Date: 20171127
  Serious: Yes (Other)
  Sender: FDA-Public Use
  Company Number: GB-AMGEN-GBRSP2017025796

PATIENT
  Age: 59 Year
  Sex: Male

DRUGS (1)
  1. ENBREL [Suspect]
     Active Substance: ETANERCEPT
     Indication: PRODUCT USED FOR UNKNOWN INDICATION
     Dosage: 50 MG, WEEKLY
     Route: 058

REACTIONS (8)
  - Rheumatoid arthritis [Not Recovered/Not Resolved]
  - Pain in extremity [Recovering/Resolving]
  - Anxiety [Unknown]
  - Gait disturbance [Unknown]
  - Musculoskeletal stiffness [Recovering/Resolving]
  - Mobility decreased [Unknown]
  - Drug effect incomplete [Unknown]
  - Injection site reaction [Unknown]
